FAERS Safety Report 9395855 (Version 1)
Quarter: 2013Q3

REPORT INFORMATION
  Report Type: Spontaneous
  Country: BE (occurrence: BE)
  Receive Date: 20130711
  Receipt Date: 20130711
  Transmission Date: 20140515
  Serious: Yes (Death, Other)
  Sender: FDA-Public Use
  Company Number: BE-ACTAVIS-2013-11765

PATIENT
  Sex: Female

DRUGS (4)
  1. CISPLATIN (UNKNOWN) [Suspect]
     Indication: SQUAMOUS CELL CARCINOMA
     Dosage: 4 CYCLES
     Route: 065
  2. CISPLATIN (UNKNOWN) [Suspect]
     Indication: BRONCHIAL CARCINOMA
  3. VINORELBINE (UNKNOWN) [Suspect]
     Indication: SQUAMOUS CELL CARCINOMA
     Dosage: 4 CYCLES
     Route: 065
  4. VINORELBINE (UNKNOWN) [Suspect]
     Indication: BRONCHIAL CARCINOMA

REACTIONS (2)
  - Bronchopulmonary aspergillosis [Fatal]
  - Neutropenia [Fatal]
